FAERS Safety Report 7344855-X (Version None)
Quarter: 2011Q1

REPORT INFORMATION
  Report Type: 
  Country: None (occurrence: None)
  Receive Date: 20110226
  Receipt Date: 20110214
  Transmission Date: 20110831
  Serious: Yes (Other)
  Sender: FDA-Public Use
  Company Number: BR-001552

PATIENT
  Sex: Male
  Weight: 22.8 kg

DRUGS (2)
  1. DIPHENHYDRAMINE HCL [Concomitant]
  2. NAGLAZYME [Suspect]
     Indication: MUCOPOLYSACCHARIDOSIS VI
     Dosage: (20 MG 1X/WEEK INTRAVENOUS DRIP)
     Route: 041
     Dates: start: 20090709

REACTIONS (2)
  - OTITIS MEDIA ACUTE [None]
  - OBSTRUCTIVE AIRWAYS DISORDER [None]
